FAERS Safety Report 11585346 (Version 3)
Quarter: 2015Q4

REPORT INFORMATION
  Report Type: Spontaneous
  Country: US (occurrence: US)
  Receive Date: 20151001
  Receipt Date: 20151214
  Transmission Date: 20160304
  Serious: Yes (Death, Hospitalization, Other)
  Sender: FDA-Public Use
  Company Number: US-PFIZER INC-2015318712

PATIENT
  Age: 77 Year
  Sex: Male
  Weight: 50 kg

DRUGS (8)
  1. INLYTA [Suspect]
     Active Substance: AXITINIB
     Dosage: 1 MG, UNK
     Dates: start: 201505, end: 201506
  2. LEVOTHYROXINE. [Concomitant]
     Active Substance: LEVOTHYROXINE
     Dosage: 150 MG, 1X/DAY
  3. ALLOPURINOL. [Concomitant]
     Active Substance: ALLOPURINOL
     Dosage: 100 MG, 1X/DAY
     Route: 048
  4. MIRTAZAPINE. [Concomitant]
     Active Substance: MIRTAZAPINE
     Dosage: 15 MG, 1X/DAY (AT BEDTIME)
     Route: 048
  5. LEVOTHYROXINE. [Concomitant]
     Active Substance: LEVOTHYROXINE
     Dosage: 150MCG TABLET, 1X/DAY
     Route: 048
  6. BUMETANIDE. [Concomitant]
     Active Substance: BUMETANIDE
     Dosage: 1 MG, 2X/DAY
     Route: 048
  7. INLYTA [Suspect]
     Active Substance: AXITINIB
     Indication: RENAL CANCER
     Dosage: 5 MG, UNK
     Route: 048
     Dates: start: 201501
  8. INLYTA [Suspect]
     Active Substance: AXITINIB
     Dosage: 3 MG, 2X/DAY, (1 MG, THREE TABLETS IN THE MORNING AND THREE TABLETS IN THE EVENING)
     Route: 048
     Dates: start: 20150115, end: 201504

REACTIONS (13)
  - Scrotal haematocoele [Recovered/Resolved]
  - Asthenia [Unknown]
  - Amnesia [Unknown]
  - Cerebrovascular accident [Unknown]
  - Scrotal swelling [Recovered/Resolved]
  - Gait disturbance [Unknown]
  - Skin fissures [Not Recovered/Not Resolved]
  - Aphonia [Unknown]
  - Peripheral swelling [Not Recovered/Not Resolved]
  - Decreased appetite [Not Recovered/Not Resolved]
  - Cardiac disorder [Unknown]
  - General physical health deterioration [Fatal]
  - Haematemesis [Unknown]

NARRATIVE: CASE EVENT DATE: 20150115
